FAERS Safety Report 6699523-4 (Version None)
Quarter: 2010Q2

REPORT INFORMATION
  Report Type: 
  Country: None (occurrence: None)
  Receive Date: 20100427
  Receipt Date: 20100427
  Transmission Date: 20101027
  Serious: No
  Sender: FDA-Public Use
  Company Number: None

PATIENT
  Age: 38 Year
  Sex: Male
  Weight: 96.6 kg

DRUGS (1)
  1. CITALOPRAM [Suspect]
     Indication: DEPRESSION
     Dosage: 60 MG EVERY DAY PO
     Route: 048
     Dates: start: 20091223, end: 20100103

REACTIONS (5)
  - ANXIETY [None]
  - DIZZINESS [None]
  - PANIC REACTION [None]
  - PARANOIA [None]
  - TACHYCARDIA [None]
